FAERS Safety Report 23376506 (Version 1)
Quarter: 2024Q1

REPORT INFORMATION
  Report Type: Spontaneous
  Country: FR (occurrence: FR)
  Receive Date: 20240108
  Receipt Date: 20240108
  Transmission Date: 20240409
  Serious: Yes (Death)
  Sender: FDA-Public Use
  Company Number: None

PATIENT
  Age: 71 Year
  Sex: Male
  Weight: 80 kg

DRUGS (1)
  1. MEROPENEM [Suspect]
     Active Substance: MEROPENEM
     Indication: Osteitis
     Route: 042
     Dates: start: 20231107, end: 20231201

REACTIONS (2)
  - Agranulocytosis [Fatal]
  - Off label use [Unknown]

NARRATIVE: CASE EVENT DATE: 20231130
